FAERS Safety Report 5584538-X (Version None)
Quarter: 2008Q1

REPORT INFORMATION
  Report Type: 
  Country: None (occurrence: None)
  Receive Date: 20080108
  Receipt Date: 20071228
  Transmission Date: 20080703
  Serious: Yes (Other)
  Sender: FDA-Public Use
  Company Number: US-ELI_LILLY_AND_COMPANY-US200710005685

PATIENT
  Sex: Female
  Weight: 86.168 kg

DRUGS (6)
  1. CYMBALTA [Suspect]
     Indication: MAJOR DEPRESSION
     Dosage: 1 MG, UNK
     Dates: start: 20060609, end: 20071005
  2. RITALIN [Concomitant]
     Dosage: 20 MG, EACH MORNING
  3. RITALIN [Concomitant]
     Dosage: 20 MG, DAILY (1/D)
  4. ADIPEX [Concomitant]
     Dosage: 37.5 MG, WEEKLY (1/W)
  5. RESTORIL [Concomitant]
     Dosage: 30 MG, EACH EVENING
  6. AMITRIPTYLINE HCL [Concomitant]
     Dosage: 25 MG, EACH EVENING

REACTIONS (4)
  - FATIGUE [None]
  - INFLUENZA LIKE ILLNESS [None]
  - LIVER FUNCTION TEST ABNORMAL [None]
  - VITAMIN D DEFICIENCY [None]
